FAERS Safety Report 15803164 (Version 9)
Quarter: 2019Q1

REPORT INFORMATION
  Report Type: Spontaneous
  Country: IN (occurrence: IN)
  Receive Date: 20190109
  Receipt Date: 20190304
  Transmission Date: 20190417
  Serious: Yes (Other)
  Sender: FDA-Public Use
  Company Number: PHHY2019IN000829

PATIENT
  Age: 25 Year
  Sex: Female

DRUGS (1)
  1. DICLOFENAC [Suspect]
     Active Substance: DICLOFENAC
     Indication: ABDOMINAL PAIN
     Dosage: UNK
     Route: 048

REACTIONS (6)
  - Anaemia [Unknown]
  - Fibrosis [Unknown]
  - Pallor [Unknown]
  - Intestinal diaphragm disease [Unknown]
  - Iron deficiency [Unknown]
  - Cryptitis [Unknown]
